FAERS Safety Report 13504053 (Version 1)
Quarter: 2017Q2

REPORT INFORMATION
  Report Type: Other
  Country: None (occurrence: US)
  Receive Date: 20170502
  Receipt Date: 20170502
  Transmission Date: 20170830
  Serious: Yes (Death)
  Sender: FDA-Public Use
  Company Number: US-KNIGHT THERAPEUTICS (USA) INC.-2020114

PATIENT
  Age: 4 Year
  Sex: Male

DRUGS (10)
  1. IMPAVIDO [Suspect]
     Active Substance: MILTEFOSINE
     Indication: NAEGLERIA INFECTION
     Route: 048
  2. RIFAMPIN. [Suspect]
     Active Substance: RIFAMPIN
  3. LORAZEPAM. [Suspect]
     Active Substance: LORAZEPAM
  4. FLUCONAZOLE. [Suspect]
     Active Substance: FLUCONAZOLE
  5. AZITHROMYCIN ANHYDROUS. [Suspect]
     Active Substance: AZITHROMYCIN ANHYDROUS
  6. PENTOBARBITAL. [Suspect]
     Active Substance: PENTOBARBITAL
  7. AMPHOTERICIN B. [Suspect]
     Active Substance: AMPHOTERICIN B
  8. DEXAMETHASONE. [Suspect]
     Active Substance: DEXAMETHASONE
  9. FOSPHENYTOIN [Suspect]
     Active Substance: FOSPHENYTOIN\FOSPHENYTOIN SODIUM
  10. MIDAZOLAM [Suspect]
     Active Substance: MIDAZOLAM HYDROCHLORIDE

REACTIONS (2)
  - Drug ineffective for unapproved indication [Fatal]
  - Off label use [Fatal]
